FAERS Safety Report 8204345-9 (Version None)
Quarter: 2012Q1

REPORT INFORMATION
  Report Type: 
  Country: None (occurrence: None)
  Receive Date: 20120313
  Receipt Date: 20120305
  Transmission Date: 20120608
  Serious: Yes (Other)
  Sender: FDA-Public Use
  Company Number: CA-NAPPMUNDI-DEU-2012-0008706

PATIENT
  Sex: Male

DRUGS (16)
  1. MORPHINE SULFATE [Suspect]
     Indication: PROCEDURAL PAIN
     Dosage: UNK, SEE TEXT
     Route: 048
  2. METHADON HCL TAB [Interacting]
     Indication: DRUG WITHDRAWAL MAINTENANCE THERAPY
     Dosage: 50 MG, DAILY
     Route: 048
  3. LEVOMEPROMAZINE [Interacting]
     Indication: PRODUCT USED FOR UNKNOWN INDICATION
     Dosage: UNK, NOCTE PRN
     Route: 048
  4. FOLIC ACID [Suspect]
     Dosage: 5 MG, DAILY
     Route: 048
  5. CLINDAMYCIN [Suspect]
     Indication: PNEUMONIA ASPIRATION
     Dosage: 600 MG, Q8H
     Route: 042
  6. METHOTRIMEPRAZINE                  /00038601/ [Suspect]
     Dosage: UNK, PRN
     Route: 048
  7. ACETAMINOPHEN W/ CODEINE [Suspect]
     Dosage: 650 MG, Q4H PRN
     Route: 048
  8. DALTEPARIN SODIUM [Suspect]
     Dosage: 5000 UNIT, DAILY
     Route: 058
  9. MORPHINE SULFATE [Suspect]
     Indication: PROCEDURAL PAIN
     Dosage: UNK
     Route: 058
  10. MORPHINE SULFATE [Suspect]
     Dosage: 2 MG, SEE TEXT
     Route: 042
  11. CEFUROXIME [Suspect]
     Indication: PNEUMONIA
     Dosage: 750 MG, Q6- 8H
     Route: 042
  12. IPRATROPIUM [Suspect]
     Indication: PNEUMONIA
  13. CIPROFLOXACIN [Interacting]
     Indication: PNEUMONIA ASPIRATION
     Dosage: 400 MG, Q12H
     Route: 042
  14. ACETAMINOPHEN W/ CODEINE [Suspect]
     Indication: PRODUCT USED FOR UNKNOWN INDICATION
     Dosage: 325 MG, SEE TEXT
     Route: 048
  15. ALBUTEROL [Suspect]
     Indication: PNEUMONIA
  16. THIAMINE HCL [Suspect]
     Dosage: 100 MG, DAILY
     Route: 048

REACTIONS (4)
  - MIOSIS [None]
  - PNEUMONIA ASPIRATION [None]
  - RESPIRATORY DEPRESSION [None]
  - SOMNOLENCE [None]
